FAERS Safety Report 19372144 (Version 4)
Quarter: 2022Q3

REPORT INFORMATION
  Report Type: Report from Study
  Country: JP (occurrence: JP)
  Receive Date: 20210604
  Receipt Date: 20220727
  Transmission Date: 20221026
  Serious: Yes (Hospitalization, Other)
  Sender: FDA-Public Use
  Company Number: JP-BEH-2021132381

PATIENT
  Age: 77 Year
  Sex: Male
  Weight: 60 kg

DRUGS (31)
  1. PRIVIGEN [Suspect]
     Active Substance: HUMAN IMMUNOGLOBULIN G
     Indication: Chronic inflammatory demyelinating polyradiculoneuropathy
     Dosage: 250 MILLILITER (400MG), QD
     Route: 041
     Dates: start: 20191127, end: 20191201
  2. PRIVIGEN [Suspect]
     Active Substance: HUMAN IMMUNOGLOBULIN G
     Indication: Chronic inflammatory demyelinating polyradiculoneuropathy
     Dosage: 300 MILLILITER, SINGLE
     Route: 041
     Dates: start: 20191217, end: 20191217
  3. PRIVIGEN [Suspect]
     Active Substance: HUMAN IMMUNOGLOBULIN G
     Indication: Chronic inflammatory demyelinating polyradiculoneuropathy
     Dosage: 300 MILLILITER, SINGLE
     Route: 041
     Dates: start: 20191218, end: 20191218
  4. PRIVIGEN [Suspect]
     Active Substance: HUMAN IMMUNOGLOBULIN G
     Indication: Chronic inflammatory demyelinating polyradiculoneuropathy
     Dosage: 250 MILLILITER, SINGLE
     Route: 041
     Dates: start: 20191228, end: 20191228
  5. PRIVIGEN [Suspect]
     Active Substance: HUMAN IMMUNOGLOBULIN G
     Dosage: 250 MILLILITER, SINGLE
     Route: 041
     Dates: start: 20191229, end: 20191229
  6. PRIVIGEN [Suspect]
     Active Substance: HUMAN IMMUNOGLOBULIN G
     Dosage: 250 MILLILITER, SINGLE
     Route: 041
     Dates: start: 20200105, end: 20200105
  7. PRIVIGEN [Suspect]
     Active Substance: HUMAN IMMUNOGLOBULIN G
     Dosage: 250 MILLILITER, SINGLE
     Route: 041
     Dates: start: 20200106, end: 20200106
  8. PRIVIGEN [Suspect]
     Active Substance: HUMAN IMMUNOGLOBULIN G
     Dosage: 250 MILLILITER, SINGLE
     Route: 041
     Dates: start: 20200111, end: 20200111
  9. PRIVIGEN [Suspect]
     Active Substance: HUMAN IMMUNOGLOBULIN G
     Dosage: 250 MILLILITER, SINGLE
     Route: 041
     Dates: start: 20200119, end: 20200119
  10. PRIVIGEN [Suspect]
     Active Substance: HUMAN IMMUNOGLOBULIN G
     Dosage: 250 MILLILITER, SINGLE
     Route: 041
     Dates: start: 20200130, end: 20200130
  11. PRIVIGEN [Suspect]
     Active Substance: HUMAN IMMUNOGLOBULIN G
     Dosage: 300 MILLILITER, SINGLE
     Route: 041
     Dates: start: 20200226, end: 20200226
  12. PRIVIGEN [Suspect]
     Active Substance: HUMAN IMMUNOGLOBULIN G
     Dosage: 300 MILLILITER, SINGLE
     Route: 041
     Dates: start: 20200317, end: 20200317
  13. PRIVIGEN [Suspect]
     Active Substance: HUMAN IMMUNOGLOBULIN G
     Dosage: 300 MILLILITER, SINGLE
     Route: 041
     Dates: start: 20200408, end: 20200408
  14. PRIVIGEN [Suspect]
     Active Substance: HUMAN IMMUNOGLOBULIN G
     Dosage: 300 MILLILITER, SINGLE
     Route: 041
     Dates: start: 20200425, end: 20200425
  15. PRIVIGEN [Suspect]
     Active Substance: HUMAN IMMUNOGLOBULIN G
     Dosage: 300 MILLILITER, SINGLE
     Route: 041
     Dates: start: 20200506, end: 20200506
  16. PRIVIGEN [Suspect]
     Active Substance: HUMAN IMMUNOGLOBULIN G
     Dosage: 300 MILLILITER, SINGLE
     Route: 041
     Dates: start: 20200520, end: 20200520
  17. PRIVIGEN [Suspect]
     Active Substance: HUMAN IMMUNOGLOBULIN G
     Dosage: 250 MILLILITER, SINGLE
     Route: 041
     Dates: start: 20200602, end: 20200602
  18. PRIVIGEN [Suspect]
     Active Substance: HUMAN IMMUNOGLOBULIN G
     Dosage: 250 MILLILITER, QD
     Route: 041
     Dates: start: 20200617, end: 20200619
  19. PRIVIGEN [Suspect]
     Active Substance: HUMAN IMMUNOGLOBULIN G
     Dosage: 250 MILLILITER, SINGLE
     Route: 041
     Dates: start: 20200624, end: 20200624
  20. PRIVIGEN [Suspect]
     Active Substance: HUMAN IMMUNOGLOBULIN G
     Dosage: 250 MILLILITER, SINGLE
     Route: 041
     Dates: start: 20200626, end: 20200626
  21. PRIVIGEN [Suspect]
     Active Substance: HUMAN IMMUNOGLOBULIN G
     Dosage: 0.4 TO 1 G/KG/WEEK
     Route: 042
  22. PRIVIGEN [Suspect]
     Active Substance: HUMAN IMMUNOGLOBULIN G
     Dosage: 0.5 G/KG IVIG EVERY 2 WEEKS
     Route: 042
  23. PRIVIGEN [Suspect]
     Active Substance: HUMAN IMMUNOGLOBULIN G
     Dosage: 25 GRAM, QD
     Route: 042
     Dates: start: 20210224, end: 20210228
  24. HIZENTRA [Suspect]
     Active Substance: HUMAN IMMUNOGLOBULIN G
     Indication: Chronic inflammatory demyelinating polyradiculoneuropathy
     Dosage: 16 GRAM, BIW
     Route: 058
  25. HIZENTRA [Suspect]
     Active Substance: HUMAN IMMUNOGLOBULIN G
     Indication: Chronic inflammatory demyelinating polyradiculoneuropathy
     Dosage: 0.4 G/KG/WEEK
     Route: 058
  26. HIZENTRA [Suspect]
     Active Substance: HUMAN IMMUNOGLOBULIN G
     Dosage: 0.53 G/KG/WEEK
     Route: 058
  27. HUMAN IMMUNOGLOBULIN G [Concomitant]
     Active Substance: HUMAN IMMUNOGLOBULIN G
     Indication: Chronic inflammatory demyelinating polyradiculoneuropathy
     Dosage: 400 MILLIGRAM, QD
     Route: 042
     Dates: start: 20200615, end: 20200616
  28. NEORAL [Concomitant]
     Active Substance: CYCLOSPORINE
     Indication: Chronic inflammatory demyelinating polyradiculoneuropathy
     Dosage: UNK
  29. NEORAL [Concomitant]
     Active Substance: CYCLOSPORINE
     Dosage: INCREASING THE DOSAGE
  30. NEORAL [Concomitant]
     Active Substance: CYCLOSPORINE
     Dosage: 90 MILLIGRAM
     Route: 048
     Dates: start: 20191215
  31. CELLCEPT [Concomitant]
     Active Substance: MYCOPHENOLATE MOFETIL
     Indication: Chronic inflammatory demyelinating polyradiculoneuropathy
     Dosage: 2500 MILLIGRAM
     Route: 048
     Dates: start: 20210303

REACTIONS (6)
  - Chronic inflammatory demyelinating polyradiculoneuropathy [Recovered/Resolved]
  - Chronic inflammatory demyelinating polyradiculoneuropathy [Unknown]
  - No adverse event [Recovered/Resolved]
  - Overdose [Recovered/Resolved]
  - Muscular weakness [Recovered/Resolved]
  - Muscular weakness [Recovered/Resolved]

NARRATIVE: CASE EVENT DATE: 20191217
